FAERS Safety Report 5915019-9 (Version None)
Quarter: 2008Q4

REPORT INFORMATION
  Report Type: 
  Country: None (occurrence: None)
  Receive Date: 20081008
  Receipt Date: 20080915
  Transmission Date: 20090506
  Serious: Yes (Hospitalization)
  Sender: FDA-Public Use
  Company Number: 2008-01023FE

PATIENT
  Age: 75 Year
  Sex: Female

DRUGS (3)
  1. MINIRIN [Suspect]
     Indication: NOCTURIA
     Dosage: PO
     Route: 048
  2. DIGOXIN [Concomitant]
  3. AMLODIPINE [Concomitant]

REACTIONS (1)
  - HYPONATRAEMIA [None]
